FAERS Safety Report 7215046-8 (Version None)
Quarter: 2011Q1

REPORT INFORMATION
  Report Type: 
  Country: None (occurrence: None)
  Receive Date: 20110107
  Receipt Date: 20100723
  Transmission Date: 20110831
  Serious: No
  Sender: FDA-Public Use
  Company Number: A0872112A

PATIENT
  Age: 69 Year
  Sex: Male

DRUGS (8)
  1. LOVAZA [Suspect]
     Dosage: 2CAP TWICE PER DAY
     Route: 048
     Dates: start: 20100528
  2. FISH OIL [Concomitant]
  3. ZOCOR [Concomitant]
  4. UNKNOWN DRUG [Concomitant]
  5. METFORMIN [Concomitant]
  6. LISINOPRIL [Concomitant]
  7. ALLOPURINOL [Concomitant]
  8. AMITRIPTYLINE [Concomitant]

REACTIONS (2)
  - GOUT [None]
  - ABASIA [None]
